FAERS Safety Report 5765761-8 (Version None)
Quarter: 2008Q2

REPORT INFORMATION
  Report Type: 
  Country: None (occurrence: None)
  Receive Date: 20080609
  Receipt Date: 20080221
  Transmission Date: 20081010
  Serious: Yes (Other)
  Sender: FDA-Public Use
  Company Number: 002#1#2008-00091

PATIENT
  Sex: Female

DRUGS (1)
  1. NEUPRO [Suspect]
     Indication: DRUG USE FOR UNKNOWN INDICATION
     Dosage: 2MG/24H, 1 IN 1 D, TRANSDERMAL; 4MG/24H, 1 IN 1 D, TRANSDERMAL
     Route: 062
     Dates: start: 20070901

REACTIONS (2)
  - DRUG INEFFECTIVE [None]
  - HYPERTENSION [None]
